FAERS Safety Report 13957852 (Version 1)
Quarter: 2017Q3

REPORT INFORMATION
  Report Type: Spontaneous
  Country: FR (occurrence: FR)
  Receive Date: 20170911
  Receipt Date: 20170911
  Transmission Date: 20171128
  Serious: Yes (Other)
  Sender: FDA-Public Use
  Company Number: FR-ALLERGAN-1750578US

PATIENT
  Sex: Male

DRUGS (1)
  1. ESCITALOPRAM OXALATE - BP [Suspect]
     Active Substance: ESCITALOPRAM OXALATE
     Indication: MATERNAL EXPOSURE TIMING UNSPECIFIED
     Dosage: UNK UNK, QD
     Route: 064

REACTIONS (4)
  - Hypertonia neonatal [Recovering/Resolving]
  - Tremor neonatal [Not Recovered/Not Resolved]
  - Tension [Recovering/Resolving]
  - Foetal exposure during pregnancy [Unknown]

NARRATIVE: CASE EVENT DATE: 20170614
